FAERS Safety Report 7582175-9 (Version None)
Quarter: 2011Q2

REPORT INFORMATION
  Report Type: 
  Country: None (occurrence: None)
  Receive Date: 20110630
  Receipt Date: 20110621
  Transmission Date: 20111010
  Serious: No
  Sender: FDA-Public Use
  Company Number: US-BIOGENIDEC-2011BI023065

PATIENT
  Age: 70 Year
  Sex: Female

DRUGS (1)
  1. AVONEX [Suspect]
     Indication: MULTIPLE SCLEROSIS
     Route: 030
     Dates: start: 20040315

REACTIONS (6)
  - NECK PAIN [None]
  - FALL [None]
  - FIBROMYALGIA [None]
  - VISUAL IMPAIRMENT [None]
  - KIDNEY INFECTION [None]
  - PAIN [None]
